FAERS Safety Report 7447099-6 (Version None)
Quarter: 2011Q2

REPORT INFORMATION
  Report Type: 
  Country: None (occurrence: None)
  Receive Date: 20110429
  Receipt Date: 20110421
  Transmission Date: 20111010
  Serious: Yes (Death)
  Sender: FDA-Public Use
  Company Number: FR-ROCHE-771600

PATIENT
  Sex: Female
  Weight: 89 kg

DRUGS (2)
  1. AVASTIN [Suspect]
     Dosage: 25MG/ML
     Route: 042
     Dates: start: 20110307, end: 20110307
  2. XELODA [Suspect]
     Route: 048
     Dates: start: 20110307, end: 20110321

REACTIONS (2)
  - PULMONARY HAEMORRHAGE [None]
  - HAEMOPTYSIS [None]
